FAERS Safety Report 16289272 (Version 1)
Quarter: 2019Q2

REPORT INFORMATION
  Report Type: Spontaneous
  Country: US (occurrence: US)
  Receive Date: 20190403
  Receipt Date: 20190403
  Transmission Date: 20190711
  Serious: No
  Sender: FDA-Public Use
  Company Number: None

PATIENT
  Age: 69 Year
  Sex: Female

DRUGS (1)
  1. SIROLIMUS TAB 1MG [Suspect]
     Active Substance: SIROLIMUS
     Dates: start: 2012

REACTIONS (6)
  - Blood pressure increased [None]
  - Glaucoma [None]
  - Food poisoning [None]
  - Blood cholesterol increased [None]
  - Immunosuppression [None]
  - Mouth ulceration [None]

NARRATIVE: CASE EVENT DATE: 20190403
